FAERS Safety Report 7239252-1 (Version None)
Quarter: 2011Q1

REPORT INFORMATION
  Report Type: 
  Country: None (occurrence: None)
  Receive Date: 20110119
  Receipt Date: 20110119
  Transmission Date: 20110831
  Serious: Yes (Other)
  Sender: FDA-Public Use
  Company Number: None

PATIENT
  Age: 38 Year
  Sex: Female
  Weight: 63.5036 kg

DRUGS (4)
  1. CIPROFLOXACIN HCL [Suspect]
     Indication: RENAL STONE REMOVAL
     Dosage: 500 MG 2 TIMES A DAY PO
     Route: 048
     Dates: start: 20101223, end: 20101230
  2. CIPROFLOXACIN HCL [Suspect]
     Indication: URINARY TRACT INFECTION
     Dosage: 500 MG 2 TIMES A DAY PO
     Route: 048
     Dates: start: 20101223, end: 20101230
  3. CIPROFLOXACIN HCL [Suspect]
     Indication: RENAL STONE REMOVAL
     Dosage: 500 MG 2 TIMES A DAY PO
     Route: 048
     Dates: start: 20101210, end: 20101213
  4. CIPROFLOXACIN HCL [Suspect]
     Indication: URINARY TRACT INFECTION
     Dosage: 500 MG 2 TIMES A DAY PO
     Route: 048
     Dates: start: 20101210, end: 20101213

REACTIONS (4)
  - ABDOMINAL PAIN UPPER [None]
  - ARTHRALGIA [None]
  - DYSPEPSIA [None]
  - PAIN IN EXTREMITY [None]
